FAERS Safety Report 9052777 (Version 1)
Quarter: 2013Q1

REPORT INFORMATION
  Report Type: Spontaneous
  Country: US (occurrence: US)
  Receive Date: 20130207
  Receipt Date: 20130207
  Transmission Date: 20140127
  Serious: Yes (Hospitalization, Other)
  Sender: FDA-Public Use
  Company Number: US-PFIZER INC-2013049531

PATIENT
  Age: 66 Year
  Sex: Female
  Weight: 71.2 kg

DRUGS (1)
  1. LIPITOR [Suspect]
     Indication: BLOOD CHOLESTEROL INCREASED
     Dosage: 20 MG, 1X/DAY
     Route: 048

REACTIONS (8)
  - Pneumonia [Recovered/Resolved]
  - Chronic obstructive pulmonary disease [Not Recovered/Not Resolved]
  - Pyrexia [Unknown]
  - Abasia [Unknown]
  - Immune system disorder [Not Recovered/Not Resolved]
  - Hypophagia [Unknown]
  - Weight decreased [Unknown]
  - Weight increased [Unknown]
